FAERS Safety Report 20173312 (Version 2)
Quarter: 2022Q1

REPORT INFORMATION
  Report Type: Spontaneous
  Country: JP (occurrence: JP)
  Receive Date: 20211211
  Receipt Date: 20220118
  Transmission Date: 20220423
  Serious: Yes (Hospitalization, Other)
  Sender: FDA-Public Use
  Company Number: JP-SYMBIO-202100459

PATIENT
  Age: 64 Year
  Sex: Female

DRUGS (13)
  1. BENDAMUSTINE HYDROCHLORIDE [Suspect]
     Active Substance: BENDAMUSTINE HYDROCHLORIDE
     Indication: Diffuse large B-cell lymphoma
     Dosage: (ONCE DAILY)
     Route: 041
     Dates: start: 202104
  2. BENDAMUSTINE HYDROCHLORIDE [Suspect]
     Active Substance: BENDAMUSTINE HYDROCHLORIDE
     Indication: Chronic lymphocytic leukaemia
     Dosage: (ONCE DAILY)
     Route: 041
     Dates: start: 202106
  3. BENDAMUSTINE HYDROCHLORIDE [Suspect]
     Active Substance: BENDAMUSTINE HYDROCHLORIDE
     Dosage: 60 MG/M2 DAILY; (CYCLIC)
     Route: 041
     Dates: start: 20210714, end: 20210715
  4. BENDAMUSTINE HYDROCHLORIDE [Suspect]
     Active Substance: BENDAMUSTINE HYDROCHLORIDE
     Dosage: 60 MILLIGRAM DAILY; (CYCLIC)
     Route: 041
     Dates: start: 20210804, end: 20210805
  5. BENDAMUSTINE HYDROCHLORIDE [Suspect]
     Active Substance: BENDAMUSTINE HYDROCHLORIDE
     Dosage: 60 MILLIGRAM DAILY; (CYCLIC)
     Route: 041
     Dates: start: 20210901, end: 20210902
  6. RITUXAN [Suspect]
     Active Substance: RITUXIMAB
     Indication: Diffuse large B-cell lymphoma
     Dosage: (ONCE DAILY)
     Route: 041
     Dates: start: 202104
  7. RITUXAN [Suspect]
     Active Substance: RITUXIMAB
     Indication: Chronic lymphocytic leukaemia
     Dosage: (ONCE DAILY)
     Route: 041
     Dates: start: 202106
  8. RITUXAN [Suspect]
     Active Substance: RITUXIMAB
     Dosage: 460 MILLIGRAM DAILY; (CYCLIC)
     Route: 041
     Dates: start: 20210713, end: 20210713
  9. RITUXAN [Suspect]
     Active Substance: RITUXIMAB
     Dosage: 460 MILLIGRAM DAILY; (CYCLIC)
     Route: 041
     Dates: start: 20210803, end: 20210803
  10. RITUXAN [Suspect]
     Active Substance: RITUXIMAB
     Dosage: 460 MILLIGRAM DAILY; (CYCLIC)
     Route: 041
     Dates: start: 20210831, end: 20210831
  11. POLIVY [Suspect]
     Active Substance: POLATUZUMAB VEDOTIN-PIIQ
     Indication: Diffuse large B-cell lymphoma
     Dosage: 66 MILLIGRAM DAILY; (CYCLIC)
     Route: 041
     Dates: start: 20210714, end: 20210714
  12. POLIVY [Suspect]
     Active Substance: POLATUZUMAB VEDOTIN-PIIQ
     Indication: Chronic lymphocytic leukaemia
     Dosage: 66 MILLIGRAM DAILY; (CYCLIC)
     Route: 041
     Dates: start: 20210804, end: 20210804
  13. POLIVY [Suspect]
     Active Substance: POLATUZUMAB VEDOTIN-PIIQ
     Dosage: 66 MILLIGRAM DAILY; (CYCLIC)
     Route: 041
     Dates: start: 20210901, end: 20210901

REACTIONS (9)
  - Febrile neutropenia [Unknown]
  - Malignant neoplasm progression [Unknown]
  - Pneumocystis jirovecii pneumonia [Unknown]
  - Myelosuppression [Unknown]
  - Neutropenia [Unknown]
  - Thrombocytopenia [Unknown]
  - Anaemia [Unknown]
  - Oral candidiasis [Unknown]
  - Off label use [Unknown]

NARRATIVE: CASE EVENT DATE: 20210101
